FAERS Safety Report 21445340 (Version 1)
Quarter: 2022Q4

REPORT INFORMATION
  Report Type: Spontaneous
  Country: JP (occurrence: JP)
  Receive Date: 20221012
  Receipt Date: 20221012
  Transmission Date: 20230113
  Serious: Yes (Death, Hospitalization)
  Sender: FDA-Public Use
  Company Number: JP-MYE-2022M1111606AA

PATIENT
  Age: 71 Year
  Sex: Male

DRUGS (2)
  1. CYCLOSPORINE [Suspect]
     Active Substance: CYCLOSPORINE
     Indication: Aplasia pure red cell
     Dosage: UNK
     Route: 065
     Dates: start: 201812, end: 201901
  2. BUSULFAN [Suspect]
     Active Substance: BUSULFAN
     Indication: Myelofibrosis
     Dosage: 2.5 MILLIGRAM
     Route: 065
     Dates: end: 201908

REACTIONS (1)
  - Primary effusion lymphoma [Fatal]
